FAERS Safety Report 6982010-3 (Version None)
Quarter: 2010Q3

REPORT INFORMATION
  Report Type: 
  Country: None (occurrence: None)
  Receive Date: 20100914
  Receipt Date: 20091105
  Transmission Date: 20110219
  Serious: No
  Sender: FDA-Public Use
  Company Number: US-PFIZER INC-2009294953

PATIENT
  Sex: Female
  Weight: 65.8 kg

DRUGS (13)
  1. LYRICA [Suspect]
     Dosage: 25 MG, 3X/DAY
     Route: 048
     Dates: start: 20070101
  2. PREVACID [Concomitant]
     Indication: GASTROOESOPHAGEAL REFLUX DISEASE
     Dosage: 30 MG, 1X/DAY
     Route: 048
  3. PROVISC [Concomitant]
     Indication: ULCER
     Dosage: 20.6 MG, 1X/DAY
  4. NORTRIPTYLINE [Concomitant]
     Indication: DEPRESSION
     Dosage: 75 MG, 1X/DAY
     Route: 048
  5. LITHIUM [Concomitant]
     Indication: DEPRESSION
     Dosage: 300 MG, 1X/DAY
     Route: 048
  6. SYNTHROID [Concomitant]
     Indication: HYPOTHYROIDISM
     Dosage: 0.1 MG, 1X/DAY
     Route: 048
  7. KLONOPIN [Concomitant]
     Indication: ANXIETY
     Dosage: 1 MG, UNK
     Route: 048
  8. ACTONEL [Concomitant]
     Indication: OSTEOPOROSIS
     Dosage: 150 MG, MONTHLY
     Route: 048
  9. SOMA [Concomitant]
     Indication: MUSCLE RELAXANT THERAPY
     Dosage: 250 MG, 1X/DAY
     Route: 048
  10. LIDODERM [Concomitant]
     Indication: PAIN
     Dosage: UNK
  11. LAXATIVES [Concomitant]
     Indication: CONSTIPATION
     Dosage: UNK
     Route: 048
  12. MACROGOL [Concomitant]
     Indication: CONSTIPATION
     Dosage: 17 G, 1X/DAY
     Route: 048
  13. MOBIC [Concomitant]
     Indication: PAIN
     Dosage: 15 MG, 1X/DAY
     Route: 048

REACTIONS (1)
  - NOCTURIA [None]
